FAERS Safety Report 10062294 (Version 2)
Quarter: 2015Q1

REPORT INFORMATION
  Report Type: Spontaneous
  Country: US (occurrence: US)
  Receive Date: 20140407
  Receipt Date: 20150205
  Transmission Date: 20150720
  Serious: No
  Sender: FDA-Public Use
  Company Number: US-GLAXOSMITHKLINE-A1054781A

PATIENT

DRUGS (10)
  1. BENLYSTA [Suspect]
     Active Substance: BELIMUMAB
     Indication: SYSTEMIC LUPUS ERYTHEMATOSUS
     Dosage: 120 MG
     Route: 042
     Dates: start: 20130911, end: 20140401
  2. PLAQUENIL [Concomitant]
     Active Substance: HYDROXYCHLOROQUINE SULFATE
  3. BENADRYL [Concomitant]
     Active Substance: DIPHENHYDRAMINE HYDROCHLORIDE
  4. FOLIC ACID. [Concomitant]
     Active Substance: FOLIC ACID
  5. NORCO [Concomitant]
     Active Substance: ACETAMINOPHEN\HYDROCODONE BITARTRATE
     Indication: PAIN
  6. KLONOPIN [Concomitant]
     Active Substance: CLONAZEPAM
  7. VITAMIN D [Concomitant]
     Active Substance: CHOLECALCIFEROL
  8. FENTANYL TRANSDERMAL SYSTEM [Concomitant]
     Active Substance: FENTANYL
     Route: 062
  9. METHOTREXATE [Concomitant]
     Active Substance: METHOTREXATE
  10. NEURONTIN [Concomitant]
     Active Substance: GABAPENTIN

REACTIONS (8)
  - Nasopharyngitis [Unknown]
  - Pain [Unknown]
  - Erythema [Unknown]
  - Peripheral swelling [Unknown]
  - Condition aggravated [Unknown]
  - Fistula [Unknown]
  - Weight increased [Unknown]
  - Laceration [Unknown]
